FAERS Safety Report 17511274 (Version 1)
Quarter: 2020Q1

REPORT INFORMATION
  Report Type: Spontaneous
  Country: AT (occurrence: AT)
  Receive Date: 20200306
  Receipt Date: 20200306
  Transmission Date: 20200409
  Serious: Yes (Other)
  Sender: FDA-Public Use
  Company Number: PHHY2019AT091166

PATIENT
  Age: 67 Year
  Sex: Female

DRUGS (6)
  1. METHOTREXATE. [Suspect]
     Active Substance: METHOTREXATE
     Indication: OCULAR LYMPHOMA
     Dosage: 8 G/M2, Q3W
     Route: 042
  2. RITUXIMAB. [Suspect]
     Active Substance: RITUXIMAB
     Indication: OCULAR LYMPHOMA
     Dosage: 375 MG/M2, Q3W
     Route: 042
  3. OFATUMUMAB [Suspect]
     Active Substance: OFATUMUMAB
     Indication: OCULAR LYMPHOMA
     Dosage: 1000 MG ABS, D1, Q28
     Route: 042
  4. RITUXIMAB. [Suspect]
     Active Substance: RITUXIMAB
     Dosage: 0.5 MG, QMO
     Route: 031
  5. METHOTREXATE. [Suspect]
     Active Substance: METHOTREXATE
     Dosage: 0.4MG MTX IN 0.1 ML, MONTHLY
     Route: 031
  6. CYTARABINE. [Suspect]
     Active Substance: CYTARABINE
     Indication: OCULAR LYMPHOMA
     Dosage: 2 G/M2X 2/D1 Q28
     Route: 042

REACTIONS (5)
  - Retinal vascular disorder [Unknown]
  - Product use in unapproved indication [Unknown]
  - Therapy non-responder [Unknown]
  - Incorrect route of product administration [Unknown]
  - Ocular lymphoma [Unknown]
